FAERS Safety Report 8441701-8 (Version None)
Quarter: 2012Q2

REPORT INFORMATION
  Report Type: 
  Country: None (occurrence: None)
  Receive Date: 20120615
  Receipt Date: 20120315
  Transmission Date: 20120825
  Serious: No
  Sender: FDA-Public Use
  Company Number: US-NOVEN-12US004305

PATIENT
  Sex: Male
  Weight: 23.129 kg

DRUGS (1)
  1. DAYTRANA [Suspect]
     Indication: ATTENTION DEFICIT/HYPERACTIVITY DISORDER
     Dosage: 10 MG, QD
     Route: 062
     Dates: start: 20120227, end: 20120315

REACTIONS (2)
  - SINUS ARRHYTHMIA [None]
  - SINUS BRADYCARDIA [None]
